FAERS Safety Report 18166371 (Version 2)
Quarter: 2021Q1

REPORT INFORMATION
  Report Type: Spontaneous
  Country: CA (occurrence: CA)
  Receive Date: 20200819
  Receipt Date: 20210121
  Transmission Date: 20210419
  Serious: Yes (Life-Threatening, Hospitalization, Other)
  Sender: FDA-Public Use
  Company Number: CA-ACCORD-195835

PATIENT
  Age: 17 Year
  Sex: Female
  Weight: 56 kg

DRUGS (31)
  1. GRANISETRON [Concomitant]
     Active Substance: GRANISETRON
  2. VANCOMYCIN [Concomitant]
     Active Substance: VANCOMYCIN
  3. BLEOMYCIN [Suspect]
     Active Substance: BLEOMYCIN SULFATE
     Indication: PRODUCT USED FOR UNKNOWN INDICATION
     Route: 042
  4. CLONIDINE. [Concomitant]
     Active Substance: CLONIDINE
  5. EMEND [Concomitant]
     Active Substance: APREPITANT
  6. FUROSEMIDE. [Concomitant]
     Active Substance: FUROSEMIDE
  7. METOCLOPRAMIDE. [Concomitant]
     Active Substance: METOCLOPRAMIDE
  8. ONDANSETRON [Concomitant]
     Active Substance: ONDANSETRON
  9. PANTOPRAZOLE [Concomitant]
     Active Substance: PANTOPRAZOLE
     Dosage: INTRAVENOUS
  10. PREGABALIN. [Concomitant]
     Active Substance: PREGABALIN
  11. PARACETAMOL [Concomitant]
     Active Substance: ACETAMINOPHEN
  12. KETAMINE [Concomitant]
     Active Substance: KETAMINE
  13. NAPROXEN. [Concomitant]
     Active Substance: NAPROXEN
  14. ETOPOSIDE. [Suspect]
     Active Substance: ETOPOSIDE
     Indication: OVARIAN GERM CELL TERATOMA STAGE III
     Dosage: FREQUENCY: 1 EVERY 1 DAYS
     Route: 042
  15. ALLOPURINOL. [Concomitant]
     Active Substance: ALLOPURINOL
  16. DIPHENHYDRAMINE. [Concomitant]
     Active Substance: DIPHENHYDRAMINE
  17. NORETHISTERONE [Concomitant]
     Active Substance: NORETHINDRONE
  18. RANITIDINE. [Concomitant]
     Active Substance: RANITIDINE
  19. ENOXAPARIN [Concomitant]
     Active Substance: ENOXAPARIN
  20. HYDROMORPHONE/HYDROMORPHONE HYDROCHLORIDE [Concomitant]
     Active Substance: HYDROMORPHONE
  21. MAGNESIUM [Concomitant]
     Active Substance: MAGNESIUM
  22. SULFAMETHOXAZOLE/TRIMETHOPRIM [Concomitant]
     Active Substance: SULFAMETHOXAZOLE\TRIMETHOPRIM
  23. ZINC. [Concomitant]
     Active Substance: ZINC
  24. POTASSIUM CHLORIDE. [Concomitant]
     Active Substance: POTASSIUM CHLORIDE
  25. DEXAMETHASONE. [Concomitant]
     Active Substance: DEXAMETHASONE
     Dosage: LIQUID
     Route: 014
  26. DIMENHYDRINATE. [Concomitant]
     Active Substance: DIMENHYDRINATE
     Dosage: LIQUID
  27. CISPLATIN. [Suspect]
     Active Substance: CISPLATIN
     Indication: OVARIAN GERM CELL TERATOMA STAGE III
     Dosage: INJECTION, FREQUENCY: 1 EVERY 1 DAYS
     Route: 042
  28. CETIRIZINE [Concomitant]
     Active Substance: CETIRIZINE HYDROCHLORIDE
  29. LORAZEPAM. [Concomitant]
     Active Substance: LORAZEPAM
  30. CALCIUM [Concomitant]
     Active Substance: CALCIUM
  31. MACROGOL [Concomitant]
     Active Substance: POLYETHYLENE GLYCOLS

REACTIONS (3)
  - Transfusion [Unknown]
  - Pancytopenia [Recovered/Resolved]
  - Febrile neutropenia [Recovered/Resolved]
